FAERS Safety Report 5879035-8 (Version None)
Quarter: 2008Q3

REPORT INFORMATION
  Report Type: 
  Country: None (occurrence: None)
  Receive Date: 20080912
  Receipt Date: 20080905
  Transmission Date: 20090109
  Serious: Yes (Other)
  Sender: FDA-Public Use
  Company Number: PHHY2008CA19952

PATIENT
  Age: 9 Year
  Sex: Female

DRUGS (3)
  1. EXJADE [Suspect]
     Indication: THALASSAEMIA SICKLE CELL
     Dosage: 30 MG/KG, QD
  2. NSAID'S [Concomitant]
  3. ACETAMINOPHEN [Concomitant]

REACTIONS (15)
  - ABDOMINAL MASS [None]
  - ABDOMINAL PAIN [None]
  - ALANINE AMINOTRANSFERASE INCREASED [None]
  - ASPARTATE AMINOTRANSFERASE INCREASED [None]
  - BIOPSY LIVER ABNORMAL [None]
  - BLOOD IRON INCREASED [None]
  - FATIGUE [None]
  - GASTROINTESTINAL DISORDER [None]
  - HAEMOSIDEROSIS [None]
  - LIVER FUNCTION TEST ABNORMAL [None]
  - NAUSEA [None]
  - PLATELET COUNT INCREASED [None]
  - SERUM FERRITIN INCREASED [None]
  - TRANSAMINASES INCREASED [None]
  - VIRAL INFECTION [None]
